FAERS Safety Report 21935932 (Version 1)
Quarter: 2023Q1

REPORT INFORMATION
  Report Type: Spontaneous
  Country: GR (occurrence: None)
  Receive Date: 20230201
  Receipt Date: 20230201
  Transmission Date: 20230417
  Serious: Yes (Other)
  Sender: FDA-Public Use
  Company Number: 2023A022774

PATIENT
  Age: 73 Year
  Sex: Female
  Weight: 75 kg

DRUGS (3)
  1. FASENRA [Suspect]
     Active Substance: BENRALIZUMAB
     Indication: Asthma
     Dosage: 30MG/ML/8WEEKS
     Route: 058
  2. FIDAXOMICIN [Concomitant]
     Active Substance: FIDAXOMICIN
     Dosage: 1X2
  3. FOSTER [Concomitant]
     Active Substance: BECLOMETHASONE\FORMOTEROL
     Dosage: 9200+6)MCG 2 TIMES TWICE A DAY (2X2)

REACTIONS (1)
  - Herpes zoster [Not Recovered/Not Resolved]
